FAERS Safety Report 12180170 (Version 1)
Quarter: 2016Q1

REPORT INFORMATION
  Report Type: Spontaneous
  Country: US (occurrence: None)
  Receive Date: 20160314
  Receipt Date: 20160314
  Transmission Date: 20160526
  Serious: Yes (Other)
  Sender: FDA-Public Use
  Company Number: None

PATIENT
  Age: 32 Year
  Sex: Female

DRUGS (4)
  1. SERTRALINE HCL 50MG AUROBINDO [Suspect]
     Active Substance: SERTRALINE HYDROCHLORIDE
     Indication: ANXIETY
     Dosage: 1 1/2 TABLETS ONCE DAILY TAKEN BY MOUTH
     Route: 048
     Dates: start: 20160201, end: 20160313
  2. CLONAZEPAM. [Concomitant]
     Active Substance: CLONAZEPAM
  3. LORATADINE. [Concomitant]
     Active Substance: LORATADINE
  4. SERTRALINE HCL 50MG AUROBINDO [Suspect]
     Active Substance: SERTRALINE HYDROCHLORIDE
     Indication: DEPRESSION
     Dosage: 1 1/2 TABLETS ONCE DAILY TAKEN BY MOUTH
     Route: 048
     Dates: start: 20160201, end: 20160313

REACTIONS (7)
  - Insomnia [None]
  - Depressed mood [None]
  - Depression [None]
  - Feeling of despair [None]
  - Suicidal ideation [None]
  - Product quality issue [None]
  - Condition aggravated [None]

NARRATIVE: CASE EVENT DATE: 20160305
